FAERS Safety Report 4835834-2 (Version None)
Quarter: 2005Q4

REPORT INFORMATION
  Report Type: 
  Country: None (occurrence: None)
  Receive Date: 20051118
  Receipt Date: 20051018
  Transmission Date: 20060501
  Serious: Yes (Death)
  Sender: FDA-Public Use
  Company Number: 2005091614

PATIENT
  Age: 68 Year
  Sex: Female
  Weight: 89.8122 kg

DRUGS (11)
  1. CELEBREX [Suspect]
     Indication: ILL-DEFINED DISORDER
     Dosage: 200 MG (200 MG , THREE TIMES A WEEK AS NEEDED)
     Dates: end: 20030101
  2. ATENOLOL [Concomitant]
  3. CLONIDINE [Concomitant]
  4. HYDROCHLOROTHIAZIDE [Concomitant]
  5. SYNTHROID [Concomitant]
  6. GLUCOVANCE (GLIBENCLAMIDE, METFROMIN HYDROCHLORIDE) [Concomitant]
  7. NOVOLIN 70/30 [Concomitant]
  8. ASPIRIN [Concomitant]
  9. EXTRA STRENGTH TYLENOL [Concomitant]
  10. FERROUS SULFATE TAB [Concomitant]
  11. MEDROXYPROGESTERONE [Concomitant]

REACTIONS (10)
  - ACUTE MYOCARDIAL INFARCTION [None]
  - ANAEMIA [None]
  - CARDIAC STRESS TEST ABNORMAL [None]
  - CARDIO-RESPIRATORY ARREST [None]
  - CORONARY ARTERY DISEASE [None]
  - CORONARY ARTERY DISSECTION [None]
  - CORONARY ARTERY OCCLUSION [None]
  - NO THERAPEUTIC RESPONSE [None]
  - POST PROCEDURAL COMPLICATION [None]
  - THROMBOSIS IN DEVICE [None]
